FAERS Safety Report 5056406-3 (Version None)
Quarter: 2006Q3

REPORT INFORMATION
  Report Type: 
  Country: None (occurrence: None)
  Receive Date: 20060717
  Receipt Date: 20060704
  Transmission Date: 20061208
  Serious: Yes (Hospitalization)
  Sender: FDA-Public Use
  Company Number: 2006083449

PATIENT
  Age: 47 Year
  Sex: Female
  Weight: 63 kg

DRUGS (6)
  1. SUTENT [Suspect]
     Indication: DRUG USE FOR UNKNOWN INDICATION
     Dosage: 50 MG (50 MG, 1 IN 1 D), ORAL
     Route: 048
     Dates: start: 20060320
  2. FLUCONAZOLE [Concomitant]
  3. DEXERYL (GLYCEROL, PARAFFIN, LIQUID, WHITE SOFT PARAFFIN) [Concomitant]
  4. MOSCONTIN (MORPHINE SULFATE) [Concomitant]
  5. ACETAMINOPHEN [Concomitant]
  6. LEVOTHYROXINE SODIUM [Concomitant]

REACTIONS (9)
  - DERMATITIS ACNEIFORM [None]
  - FATIGUE [None]
  - FEMUR FRACTURE [None]
  - HAIR COLOUR CHANGES [None]
  - MUCOSAL INFLAMMATION [None]
  - PATHOLOGICAL FRACTURE [None]
  - PLATELET DISORDER [None]
  - SKIN DISCOLOURATION [None]
  - WHITE BLOOD CELL COUNT INCREASED [None]
